FAERS Safety Report 4888093-9 (Version None)
Quarter: 2006Q1

REPORT INFORMATION
  Report Type: 
  Country: None (occurrence: None)
  Receive Date: 20060123
  Receipt Date: 20051005
  Transmission Date: 20060701
  Serious: Yes (Disabling)
  Sender: FDA-Public Use
  Company Number: US-MERCK-0510USA05578

PATIENT
  Age: 55 Year
  Sex: Male
  Weight: 105 kg

DRUGS (7)
  1. VIOXX [Suspect]
     Indication: ARTHRITIS
     Route: 048
     Dates: start: 20010201, end: 20040901
  2. AGGRENOX [Concomitant]
     Route: 065
  3. LIPITOR [Concomitant]
     Route: 065
  4. NORVASC [Concomitant]
     Route: 065
  5. ASPIRIN [Concomitant]
     Route: 065
  6. DITROPAN XL [Concomitant]
     Route: 065
  7. GLYBURIDE [Concomitant]
     Route: 065

REACTIONS (6)
  - CARPAL TUNNEL SYNDROME [None]
  - DIABETES MELLITUS NON-INSULIN-DEPENDENT [None]
  - ISCHAEMIC STROKE [None]
  - RASH [None]
  - TOE AMPUTATION [None]
  - TRANSIENT ISCHAEMIC ATTACK [None]
